FAERS Safety Report 4943280-6 (Version None)
Quarter: 2006Q1

REPORT INFORMATION
  Report Type: 
  Country: None (occurrence: None)
  Receive Date: 20060314
  Receipt Date: 20041126
  Transmission Date: 20060701
  Serious: Yes (Life-Threatening, Hospitalization)
  Sender: FDA-Public Use
  Company Number: FR-ROCHE-387200

PATIENT
  Age: 43 Year
  Sex: Female

DRUGS (3)
  1. PEG-INTERFERON ALFA 2A (RO 25-8310) [Suspect]
     Dosage: FORMULATION: INJECTABLE SOLUTION.
     Route: 058
     Dates: start: 20040924, end: 20041124
  2. RIBAVIRIN [Suspect]
     Route: 048
     Dates: start: 20040924, end: 20041124
  3. DAFALGAN [Concomitant]
     Dates: start: 20040902

REACTIONS (3)
  - GINGIVAL BLEEDING [None]
  - MIGRAINE [None]
  - PANCYTOPENIA [None]
